FAERS Safety Report 7157376-4 (Version None)
Quarter: 2010Q4

REPORT INFORMATION
  Report Type: 
  Country: None (occurrence: None)
  Receive Date: 20101130
  Receipt Date: 20101119
  Transmission Date: 20110411
  Serious: Yes (Hospitalization)
  Sender: FDA-Public Use
  Company Number: LTI2010A00085

PATIENT
  Age: 66 Year
  Sex: Female

DRUGS (10)
  1. ACTOS [Suspect]
     Indication: TYPE 2 DIABETES MELLITUS
     Dosage: 20 MG (30 MG, 1 IN 1 D), ORAL
     Route: 048
     Dates: start: 20090701, end: 20100111
  2. AMARYL [Concomitant]
  3. ALDACTONE [Concomitant]
  4. LASIX [Concomitant]
  5. CACIT VITAMIN D3 9COLECALCIFEROL, CALCIUM CARBONATE) [Concomitant]
  6. LEVOTHYROX (LEVOTHYROXINE SODIUM) [Concomitant]
  7. SEREVENT (SALMETEROL XINAFOATE0 [Concomitant]
  8. FLUTICASONE PROPIONATE [Concomitant]
  9. ACETAMINOPHEN [Concomitant]
  10. OXYGEN THERAPY (OXYGEN) [Concomitant]

REACTIONS (7)
  - ACUTE RESPIRATORY FAILURE [None]
  - BLOOD THYROID STIMULATING HORMONE INCREASED [None]
  - CELLULITIS [None]
  - GENERALISED OEDEMA [None]
  - RASH [None]
  - SOMNOLENCE [None]
  - WEIGHT INCREASED [None]
